FAERS Safety Report 7587456-0 (Version None)
Quarter: 2011Q3

REPORT INFORMATION
  Report Type: 
  Country: None (occurrence: None)
  Receive Date: 20110704
  Receipt Date: 20110623
  Transmission Date: 20111222
  Serious: No
  Sender: FDA-Public Use
  Company Number: US-BIOGENIDEC-2011BI023465

PATIENT
  Age: 26 Year
  Sex: Female

DRUGS (1)
  1. AVONEX [Suspect]
     Indication: MULTIPLE SCLEROSIS
     Route: 030
     Dates: start: 20110615

REACTIONS (6)
  - DIZZINESS [None]
  - DYSPNOEA [None]
  - INJECTION SITE PAIN [None]
  - MUSCLE TIGHTNESS [None]
  - CHEST PAIN [None]
  - INJECTION SITE HAEMORRHAGE [None]
